FAERS Safety Report 8053181-5 (Version None)
Quarter: 2012Q1

REPORT INFORMATION
  Report Type: 
  Country: None (occurrence: None)
  Receive Date: 20120118
  Receipt Date: 20120113
  Transmission Date: 20120608
  Serious: No
  Sender: FDA-Public Use
  Company Number: US-B.I. PHARMACEUTICALS,INC./RIDGEFIELD-2012-BP-00832BP

PATIENT
  Age: 78 Year
  Sex: Male

DRUGS (2)
  1. TRADJENTA [Suspect]
     Dosage: N
  2. MEDICATION NOT FURTHER SPECIFIED [Concomitant]

REACTIONS (3)
  - NAUSEA [None]
  - DRUG INEFFECTIVE [None]
  - DIARRHOEA [None]
